FAERS Safety Report 9336349 (Version 2)
Quarter: 2014Q1

REPORT INFORMATION
  Report Type: Report from Study
  Country: GB (occurrence: HU)
  Receive Date: 20130607
  Receipt Date: 20140206
  Transmission Date: 20141002
  Serious: Yes (Death)
  Sender: FDA-Public Use
  Company Number: HU-ROCHE-GNE298439

PATIENT
  Age: 57 Year
  Sex: Female
  Weight: 103.11 kg

DRUGS (2)
  1. RANIBIZUMAB [Suspect]
     Indication: DIABETIC RETINAL OEDEMA
     Dosage: 0.05 ML, UNK
     Route: 050
     Dates: start: 20081217
  2. RANIBIZUMAB [Suspect]
     Route: 050
     Dates: start: 20100118, end: 20100118

REACTIONS (1)
  - Acute myocardial infarction [Fatal]
